FAERS Safety Report 6444997-7 (Version None)
Quarter: 2009Q4

REPORT INFORMATION
  Report Type: 
  Country: None (occurrence: None)
  Receive Date: 20091116
  Receipt Date: 20091116
  Transmission Date: 20100525
  Serious: Yes (Hospitalization)
  Sender: FDA-Public Use
  Company Number: None

PATIENT
  Sex: Male
  Weight: 67.4 kg

DRUGS (7)
  1. CYTARABINE [Suspect]
     Dosage: 14400 MG
  2. ETOPOSIDE [Suspect]
     Dosage: 540 MG
  3. IFOSFAMIDE [Suspect]
     Dosage: 2700 MG
  4. MESNA [Suspect]
     Dosage: 2700 MG
  5. METHOTREXATE [Suspect]
     Dosage: 12 MG
  6. NEULASTA [Suspect]
     Dosage: 6 MG
  7. RITUXIMAB (MOAB C2B8 ANTI CD20, CHIMERIC) [Suspect]
     Dosage: 675 MG

REACTIONS (8)
  - CELLULITIS [None]
  - ECTHYMA [None]
  - FATIGUE [None]
  - GANGRENE [None]
  - HELICOBACTER INFECTION [None]
  - MALAISE [None]
  - NEUTROPENIA [None]
  - THROMBOPHLEBITIS SUPERFICIAL [None]
